FAERS Safety Report 12901934 (Version 1)
Quarter: 2016Q4

REPORT INFORMATION
  Report Type: Spontaneous
  Country: CR (occurrence: CR)
  Receive Date: 20161102
  Receipt Date: 20161102
  Transmission Date: 20170207
  Serious: Yes (Other)
  Sender: FDA-Public Use
  Company Number: CR-ROCHE-1849429

PATIENT
  Sex: Female

DRUGS (2)
  1. VALIXA [Suspect]
     Active Substance: VALGANCICLOVIR
     Indication: ANTIVIRAL PROPHYLAXIS
     Route: 048
     Dates: start: 20161013, end: 20161021
  2. SULFAMETHOXAZOLE/TRIMETHOPRIM [Suspect]
     Active Substance: SULFAMETHOXAZOLE\TRIMETHOPRIM
     Indication: INFECTION PROPHYLAXIS
     Dosage: 160/800 MG
     Route: 048
     Dates: start: 20161013, end: 20161021

REACTIONS (1)
  - Hepatitis [Not Recovered/Not Resolved]
